FAERS Safety Report 12729075 (Version 4)
Quarter: 2017Q1

REPORT INFORMATION
  Report Type: Report from Study
  Country: US (occurrence: US)
  Receive Date: 20160909
  Receipt Date: 20170127
  Transmission Date: 20170428
  Serious: Yes (Other)
  Sender: FDA-Public Use
  Company Number: PHEH2016US022811

PATIENT
  Age: 54 Year
  Sex: Female

DRUGS (2)
  1. LOTENSIN [Concomitant]
     Active Substance: BENAZEPRIL HYDROCHLORIDE
     Indication: PRODUCT USED FOR UNKNOWN INDICATION
     Route: 065
  2. AFINITOR [Suspect]
     Active Substance: EVEROLIMUS
     Indication: ANGIOMYOLIPOMA
     Dosage: 5 MG, QD
     Route: 048
     Dates: start: 20160720, end: 20161017

REACTIONS (21)
  - Impaired healing [Unknown]
  - Arthropod bite [Unknown]
  - Hyperhidrosis [Unknown]
  - Deafness [Unknown]
  - Visual impairment [Unknown]
  - Thirst [Unknown]
  - Salivary gland disorder [Unknown]
  - Skin ulcer [Unknown]
  - Skin discolouration [Unknown]
  - Insomnia [Recovering/Resolving]
  - Malaise [Unknown]
  - Dysgeusia [Unknown]
  - Influenza [Unknown]
  - Wrong technique in product usage process [Unknown]
  - Emotional disorder [Unknown]
  - Hypoacusis [Unknown]
  - Rash [Not Recovered/Not Resolved]
  - Breast ulceration [Unknown]
  - Blood cholesterol increased [Unknown]
  - Hypertension [Unknown]
  - Bronchitis [Unknown]

NARRATIVE: CASE EVENT DATE: 20160720
